FAERS Safety Report 24927858 (Version 2)
Quarter: 2025Q3

REPORT INFORMATION
  Report Type: Report from Study
  Country: US (occurrence: US)
  Receive Date: 20250205
  Receipt Date: 20250810
  Transmission Date: 20251020
  Serious: Yes (Other)
  Sender: ALEXION PHARMACEUTICALS
  Company Number: US-AstraZeneca-CH-00796044A

PATIENT
  Age: 84 Year
  Sex: Female
  Weight: 45.351 kg

DRUGS (1)
  1. TAGRISSO [Suspect]
     Active Substance: OSIMERTINIB
     Dosage: 80 MILLIGRAM, QD
     Dates: start: 202103

REACTIONS (2)
  - Product dose omission issue [Unknown]
  - Deafness [Unknown]

NARRATIVE: CASE EVENT DATE: 20250101
